FAERS Safety Report 12285757 (Version 1)
Quarter: 2016Q2

REPORT INFORMATION
  Report Type: Spontaneous
  Country: US (occurrence: None)
  Receive Date: 20160419
  Receipt Date: 20160419
  Transmission Date: 20160815
  Serious: Yes (Other)
  Sender: FDA-Public Use
  Company Number: None

PATIENT
  Age: 47 Year
  Sex: Female

DRUGS (2)
  1. BYDUREON [Suspect]
     Active Substance: EXENATIDE
     Indication: TYPE 2 DIABETES MELLITUS
     Route: 058
  2. VICTOZA [Concomitant]
     Active Substance: LIRAGLUTIDE

REACTIONS (3)
  - Jaw disorder [None]
  - Lip swelling [None]
  - Swelling [None]

NARRATIVE: CASE EVENT DATE: 20160409
